FAERS Safety Report 6359912-4 (Version None)
Quarter: 2009Q3

REPORT INFORMATION
  Report Type: 
  Country: None (occurrence: None)
  Receive Date: 20090917
  Receipt Date: 20090320
  Transmission Date: 20100115
  Serious: No
  Sender: FDA-Public Use
  Company Number: US-BRISTOL-MYERS SQUIBB COMPANY-14559165

PATIENT
  Age: 61 Year
  Sex: Female

DRUGS (8)
  1. MEGACE [Suspect]
     Indication: UTERINE DISORDER
     Dosage: 1 DF = 1 TAB.2008-JAN09:1DF; JAN09:2 DF.
     Route: 048
     Dates: start: 20080101
  2. LEXAPRO [Suspect]
     Indication: DEPRESSION
     Dosage: NOV08-JAN09:10MG;JAN09-24FEB09:20MG;25FEB-10MAR:10MG;11MAR:20MG.
     Route: 048
     Dates: start: 20081101
  3. LEXAPRO [Suspect]
     Indication: ANXIETY
     Dosage: NOV08-JAN09:10MG;JAN09-24FEB09:20MG;25FEB-10MAR:10MG;11MAR:20MG.
     Route: 048
     Dates: start: 20081101
  4. XANAX [Concomitant]
  5. METOPROLOL TARTRATE [Concomitant]
  6. PERCOCET [Concomitant]
  7. CRESTOR [Concomitant]
  8. NEXIUM [Concomitant]

REACTIONS (3)
  - ABNORMAL DREAMS [None]
  - DYSPEPSIA [None]
  - HYPERHIDROSIS [None]
